FAERS Safety Report 19933001 (Version 3)
Quarter: 2021Q4

REPORT INFORMATION
  Report Type: Report from Study
  Country: FR (occurrence: None)
  Receive Date: 20211008
  Receipt Date: 20211115
  Transmission Date: 20220303
  Serious: Yes (Hospitalization)
  Sender: FDA-Public Use
  Company Number: FR-ROCHE-2928796

PATIENT
  Age: 17 Year
  Sex: Male
  Weight: 65 kg

DRUGS (5)
  1. ATEZOLIZUMAB [Suspect]
     Active Substance: ATEZOLIZUMAB
     Indication: Soft tissue sarcoma
     Dosage: LAST ADMINISTRATION ON 24-SEP-2021
     Route: 042
     Dates: start: 20210910, end: 20210924
  2. COBIMETINIB [Suspect]
     Active Substance: COBIMETINIB
     Indication: Soft tissue sarcoma
     Dosage: 1 DAY(S) 21 DAYS ON / 7 DAYS OFF
     Route: 048
     Dates: start: 20210910, end: 20210928
  3. KETOPROFEN [Suspect]
     Active Substance: KETOPROFEN
     Indication: Soft tissue sarcoma
     Route: 048
     Dates: start: 20210928, end: 20210930
  4. MORPHINE [Concomitant]
     Active Substance: MORPHINE
     Indication: Pain
  5. KETOPROFEN [Concomitant]
     Active Substance: KETOPROFEN
     Indication: Pain

REACTIONS (2)
  - Syncope [Not Recovered/Not Resolved]
  - Speech disorder [Not Recovered/Not Resolved]

NARRATIVE: CASE EVENT DATE: 20210928
